FAERS Safety Report 13174254 (Version 1)
Quarter: 2017Q1

REPORT INFORMATION
  Report Type: Spontaneous
  Country: US (occurrence: US)
  Receive Date: 20170201
  Receipt Date: 20170201
  Transmission Date: 20170428
  Serious: Yes (Other)
  Sender: FDA-Public Use
  Company Number: US-009507513-1701USA010905

PATIENT
  Sex: Female

DRUGS (1)
  1. DIFICID [Suspect]
     Active Substance: FIDAXOMICIN
     Indication: INFECTION
     Dosage: UNK
     Route: 048

REACTIONS (2)
  - Deafness [Not Recovered/Not Resolved]
  - Drug effect incomplete [Not Recovered/Not Resolved]
